FAERS Safety Report 15302443 (Version 1)
Quarter: 2018Q3

REPORT INFORMATION
  Report Type: Spontaneous
  Country: FR (occurrence: FR)
  Receive Date: 20180821
  Receipt Date: 20180821
  Transmission Date: 20181010
  Serious: Yes (Death, Other)
  Sender: FDA-Public Use
  Company Number: FR-SA-2018SA016106

PATIENT
  Age: 88 Year
  Sex: Male

DRUGS (14)
  1. KARDEGIC [Suspect]
     Active Substance: ASPIRIN DL-LYSINE
     Indication: ISCHAEMIC HEART DISEASE PROPHYLAXIS
     Dosage: 75 MG,UNK
     Route: 048
     Dates: start: 20171226, end: 20171231
  2. ATORVASTATIN [Concomitant]
     Active Substance: ATORVASTATIN
  3. FUROSEMIDE. [Concomitant]
     Active Substance: FUROSEMIDE
  4. METHOTREXATE. [Concomitant]
     Active Substance: METHOTREXATE
  5. CLOPIDOGREL BISULFATE. [Suspect]
     Active Substance: CLOPIDOGREL BISULFATE
     Indication: ISCHAEMIC HEART DISEASE PROPHYLAXIS
     Dosage: 1 DF,UNK
     Route: 048
     Dates: start: 20171223, end: 20171225
  6. DIFFU K [Concomitant]
     Active Substance: POTASSIUM CHLORIDE
  7. PERMIXON [Concomitant]
     Active Substance: HERBALS\SAW PALMETTO
  8. BISOPROLOL FUMARATE. [Concomitant]
     Active Substance: BISOPROLOL FUMARATE
  9. ELIQUIS [Suspect]
     Active Substance: APIXABAN
     Indication: ATRIAL FIBRILLATION
     Dosage: 10 MG,UNK
     Route: 048
     Dates: start: 20171227, end: 20171231
  10. SILODOSIN [Concomitant]
     Active Substance: SILODOSIN
  11. PARACETAMOL [Concomitant]
     Active Substance: ACETAMINOPHEN
  12. METHYLPREDNISOLONE. [Concomitant]
     Active Substance: METHYLPREDNISOLONE
  13. LOVENOX [Suspect]
     Active Substance: ENOXAPARIN SODIUM
     Indication: ANTICOAGULANT THERAPY
     Dosage: 4000 IU,UNK
     Route: 058
     Dates: start: 20171222, end: 20171228
  14. UVEDOSE [Concomitant]
     Active Substance: CHOLECALCIFEROL

REACTIONS (1)
  - Intra-abdominal haemorrhage [Fatal]

NARRATIVE: CASE EVENT DATE: 20171230
